FAERS Safety Report 5754477-X (Version None)
Quarter: 2008Q2

REPORT INFORMATION
  Report Type: 
  Country: None (occurrence: None)
  Receive Date: 20080530
  Receipt Date: 20080527
  Transmission Date: 20081010
  Serious: Yes (Death)
  Sender: FDA-Public Use
  Company Number: US-BOEHRINGER INGELHEIM GMBH, GERMANY-2008-BP-08135BP

PATIENT
  Age: 85 Year
  Sex: Male

DRUGS (8)
  1. DULCOLAX [Suspect]
     Indication: CONSTIPATION
     Route: 048
     Dates: start: 20080411, end: 20080411
  2. FUROSEMIDE [Concomitant]
  3. METOPROLOL TARTRATE [Concomitant]
  4. PAIN PATCH [Concomitant]
  5. LIPITOR [Concomitant]
  6. PEPCID [Concomitant]
     Indication: GASTRIC DISORDER
  7. INSULIN [Concomitant]
  8. METAMUCIL [Concomitant]

REACTIONS (3)
  - GASTRIC ULCER [None]
  - HAEMATOCHEZIA [None]
  - RECTAL HAEMORRHAGE [None]
